FAERS Safety Report 15895993 (Version 5)
Quarter: 2023Q1

REPORT INFORMATION
  Report Type: Spontaneous
  Country: AU (occurrence: AU)
  Receive Date: 20190131
  Receipt Date: 20230310
  Transmission Date: 20230418
  Serious: Yes (Other)
  Sender: FDA-Public Use
  Company Number: AU-JNJFOC-20190132791

PATIENT
  Age: 14 Year
  Sex: Male

DRUGS (9)
  1. RISPERDAL CONSTA [Suspect]
     Active Substance: RISPERIDONE
     Indication: Schizophrenia
     Route: 030
     Dates: start: 20071208, end: 2008
  2. RISPERDAL CONSTA [Suspect]
     Active Substance: RISPERIDONE
  3. RISPERDAL CONSTA [Suspect]
     Active Substance: RISPERIDONE
  4. RISPERDAL CONSTA [Suspect]
     Active Substance: RISPERIDONE
  5. RISPERDAL [Suspect]
     Active Substance: RISPERIDONE
     Indication: Schizophrenia
     Route: 048
     Dates: start: 20071208, end: 2008
  6. RISPERIDONE [Suspect]
     Active Substance: RISPERIDONE
     Indication: Schizophrenia
     Route: 048
     Dates: start: 20071209, end: 20080121
  7. OLANZAPINE [Suspect]
     Active Substance: OLANZAPINE
     Indication: Schizophrenia
     Route: 065
     Dates: start: 20071104, end: 2008
  8. OLANZAPINE [Suspect]
     Active Substance: OLANZAPINE
     Indication: Autism spectrum disorder
  9. OLANZAPINE [Suspect]
     Active Substance: OLANZAPINE
     Indication: Bipolar disorder

REACTIONS (19)
  - Drug abuse [Unknown]
  - Mental disorder [Unknown]
  - Obesity [Unknown]
  - Arachnoid cyst [Unknown]
  - Scar [Unknown]
  - Amnesia [Unknown]
  - Myopia [Unknown]
  - Behaviour disorder [Unknown]
  - Aggression [Unknown]
  - Insomnia [Unknown]
  - Communication disorder [Unknown]
  - Gynaecomastia [Unknown]
  - Tremor [Unknown]
  - Asthenia [Unknown]
  - Withdrawal syndrome [Unknown]
  - Psychomotor hyperactivity [Unknown]
  - Intentional product use issue [Unknown]
  - Off label use [Unknown]
  - Product use issue [Unknown]

NARRATIVE: CASE EVENT DATE: 20071208
